FAERS Safety Report 5166131-6 (Version None)
Quarter: 2006Q4

REPORT INFORMATION
  Report Type: 
  Country: None (occurrence: None)
  Receive Date: 20061129
  Receipt Date: 20061114
  Transmission Date: 20070319
  Serious: Yes (Hospitalization)
  Sender: FDA-Public Use
  Company Number: 232608

PATIENT
  Age: 56 Year
  Sex: Female

DRUGS (3)
  1. AVASTIN [Suspect]
     Indication: RECTAL CANCER
     Dosage: 5 UNK, UNK, UNK
     Dates: start: 20060821
  2. CAPECITABINE(CAPECITABINE) [Suspect]
     Indication: RECTAL CANCER
     Dosage: 42000 UNK, UNK, UNK
     Dates: start: 20060821
  3. OXALIPLATIN [Suspect]
     Indication: RECTAL CANCER
     Dosage: 85 UNK, UNK, UNK
     Dates: start: 20060821

REACTIONS (11)
  - ABDOMINAL PAIN [None]
  - BLOOD CULTURE POSITIVE [None]
  - BODY TEMPERATURE INCREASED [None]
  - CLOSTRIDIAL INFECTION [None]
  - COLITIS [None]
  - DIARRHOEA INFECTIOUS [None]
  - HAEMATOCHEZIA [None]
  - INTERNATIONAL NORMALISED RATIO INCREASED [None]
  - NEUTROPHIL COUNT DECREASED [None]
  - PLATELET COUNT INCREASED [None]
  - STAPHYLOCOCCAL INFECTION [None]
